FAERS Safety Report 9122256 (Version 3)
Quarter: 2013Q2

REPORT INFORMATION
  Report Type: Spontaneous
  Country: US (occurrence: US)
  Receive Date: 20130227
  Receipt Date: 20130620
  Transmission Date: 20140414
  Serious: Yes (Other)
  Sender: FDA-Public Use
  Company Number: US-BAYER-2013-024374

PATIENT
  Age: 72 Year
  Sex: Male
  Weight: 51.25 kg

DRUGS (4)
  1. STIVARGA [Suspect]
     Indication: COLORECTAL CANCER
     Dosage: 160 MG, QD
     Dates: start: 20121029, end: 20130222
  2. STIVARGA [Suspect]
     Indication: RECTAL CANCER
     Dosage: 120 MG, QD
     Dates: start: 20130222
  3. STIVARGA [Suspect]
     Indication: COLORECTAL CANCER
     Dosage: 160 MG, UNK
     Route: 048
     Dates: start: 20121105, end: 20130318
  4. STIVARGA [Suspect]
     Indication: COLORECTAL CANCER
     Dosage: 160 MG, UNK
     Route: 048
     Dates: start: 20121105

REACTIONS (3)
  - Colorectal cancer [None]
  - Gynaecomastia [Unknown]
  - Breast tenderness [Unknown]
